FAERS Safety Report 4619950-6 (Version None)
Quarter: 2005Q1

REPORT INFORMATION
  Report Type: 
  Country: None (occurrence: None)
  Receive Date: 20050323
  Receipt Date: 20050323
  Transmission Date: 20050727
  Serious: Yes (Hospitalization)
  Sender: FDA-Public Use
  Company Number: None

PATIENT
  Age: 61 Year
  Sex: Female
  Weight: 106 kg

DRUGS (6)
  1. LIPITOR [Suspect]
     Indication: HYPERCHOLESTEROLAEMIA
     Dosage: 40 MG PO QD
     Route: 048
     Dates: start: 20041112, end: 20051222
  2. ATENOLOL [Concomitant]
  3. RAMIPRIL [Concomitant]
  4. ASPIRIN [Concomitant]
  5. LEVOFLOXACIN [Concomitant]
  6. CLINDAMYCIN [Concomitant]

REACTIONS (2)
  - ASTHENIA [None]
  - BLOOD CREATINE PHOSPHOKINASE INCREASED [None]
